FAERS Safety Report 8500183-8 (Version None)
Quarter: 2012Q3

REPORT INFORMATION
  Report Type: 
  Country: None (occurrence: None)
  Receive Date: 20120710
  Receipt Date: 20120706
  Transmission Date: 20120928
  Serious: Yes (Death)
  Sender: FDA-Public Use
  Company Number: BR-PFIZER INC-2012162482

PATIENT
  Age: 64 Year
  Sex: Male

DRUGS (3)
  1. NORVASC [Suspect]
     Indication: BLOOD PRESSURE
     Dosage: 5 MG, 1X/DAY
     Route: 048
     Dates: start: 19981220
  2. OLMESARTAN MEDOXOMIL [Suspect]
     Indication: BLOOD PRESSURE
     Dosage: 40 MG, 1X/DAY
     Route: 048
     Dates: start: 20100208
  3. LIPITOR [Suspect]
     Indication: BLOOD CHOLESTEROL
     Dosage: 20 MG, 1X/DAY
     Route: 048
     Dates: start: 20100210

REACTIONS (1)
  - RENAL CANCER [None]
